FAERS Safety Report 23172126 (Version 2)
Quarter: 2023Q4

REPORT INFORMATION
  Report Type: Spontaneous
  Country: CA (occurrence: CA)
  Receive Date: 20231110
  Receipt Date: 20231208
  Transmission Date: 20240109
  Serious: Yes (Other)
  Sender: FDA-Public Use
  Company Number: CA-009507513-2311CAN002580

PATIENT
  Sex: Female

DRUGS (6)
  1. KEYTRUDA [Suspect]
     Active Substance: PEMBROLIZUMAB
     Indication: Renal cancer
     Dosage: 200 MILLIGRAM, Q3, CYCLE 1
     Route: 065
     Dates: start: 20230515, end: 20230515
  2. KEYTRUDA [Suspect]
     Active Substance: PEMBROLIZUMAB
     Dosage: 200 MILLIGRAM, Q3W, CYCLE 2
     Route: 065
     Dates: start: 2023, end: 2023
  3. KEYTRUDA [Suspect]
     Active Substance: PEMBROLIZUMAB
     Dosage: 200 MILLIGRAM, Q3W, CYCLE 3
     Route: 065
     Dates: start: 20231025, end: 20231025
  4. AXITINIB [Suspect]
     Active Substance: AXITINIB
     Indication: Renal cancer
     Dosage: UNK
     Route: 065
     Dates: end: 20230606
  5. AXITINIB [Suspect]
     Active Substance: AXITINIB
     Dosage: UNK
     Route: 065
     Dates: start: 20230721, end: 20230829
  6. KEPPRA [Suspect]
     Active Substance: LEVETIRACETAM
     Dosage: UNK
     Route: 065

REACTIONS (2)
  - Hepatitis [Unknown]
  - Hallucination [Unknown]

NARRATIVE: CASE EVENT DATE: 20230101
